FAERS Safety Report 15618432 (Version 1)
Quarter: 2018Q4

REPORT INFORMATION
  Report Type: Spontaneous
  Country: TR (occurrence: TR)
  Receive Date: 20181114
  Receipt Date: 20181114
  Transmission Date: 20190205
  Serious: Yes (Hospitalization, Other)
  Sender: FDA-Public Use
  Company Number: TR-IMPAX LABORATORIES, LLC-2018-IPXL-03764

PATIENT
  Age: 56 Year
  Sex: Female

DRUGS (2)
  1. DIVALPROEX SODIUM ER [Suspect]
     Active Substance: DIVALPROEX SODIUM
     Indication: BIPOLAR DISORDER
     Dosage: 200 MILLIGRAM, DAILY
     Route: 048
     Dates: start: 2006
  2. CARBAMAZEPINE. [Suspect]
     Active Substance: CARBAMAZEPINE
     Indication: BIPOLAR DISORDER
     Dosage: 500 MILLIGRAM, DAILY
     Route: 048
     Dates: start: 2006

REACTIONS (1)
  - Gastric polyps [Not Recovered/Not Resolved]
